FAERS Safety Report 22096709 (Version 1)
Quarter: 2023Q1

REPORT INFORMATION
  Report Type: Spontaneous
  Country: NL (occurrence: NL)
  Receive Date: 20230315
  Receipt Date: 20230315
  Transmission Date: 20230418
  Serious: Yes (Other)
  Sender: FDA-Public Use
  Company Number: NL-LRB-00869591

PATIENT
  Sex: Female
  Weight: 69 kg

DRUGS (1)
  1. AMOXICILLIN\CLAVULANIC ACID [Suspect]
     Active Substance: AMOXICILLIN\CLAVULANIC ACID
     Indication: Uterine infection
     Dosage: 1 DOSAGE FORM, 3 TIMES A DAY, 3X PER DAG 1 STUK
     Route: 065
     Dates: start: 20230103

REACTIONS (3)
  - Arrhythmia [Not Recovered/Not Resolved]
  - Menstruation delayed [Not Recovered/Not Resolved]
  - Pain [Not Recovered/Not Resolved]
